FAERS Safety Report 16755893 (Version 1)
Quarter: 2019Q3

REPORT INFORMATION
  Report Type: Spontaneous
  Country: US (occurrence: US)
  Receive Date: 20190829
  Receipt Date: 20190829
  Transmission Date: 20191005
  Serious: No
  Sender: FDA-Public Use
  Company Number: US-ENDO PHARMACEUTICALS INC-2019-103095

PATIENT
  Sex: Female
  Weight: 88.45 kg

DRUGS (4)
  1. HYDROCODONE [Concomitant]
     Active Substance: HYDROCODONE
     Indication: FACIAL PARALYSIS
     Dosage: 7.5 MG, UNKNOWN
     Route: 065
  2. LYRICA [Concomitant]
     Active Substance: PREGABALIN
     Indication: FIBROMYALGIA
     Dosage: 150 MG, TID
     Route: 065
     Dates: start: 2008
  3. LYRICA [Concomitant]
     Active Substance: PREGABALIN
     Dosage: 75 MG, PRN
     Route: 065
  4. PREDNISONE. [Suspect]
     Active Substance: PREDNISONE
     Indication: OFF LABEL USE
     Dosage: UNK UNK, UNKNOWN
     Route: 065
     Dates: start: 2004

REACTIONS (2)
  - Drug ineffective for unapproved indication [Unknown]
  - Irritability [Unknown]
